FAERS Safety Report 6867358-5 (Version None)
Quarter: 2010Q2

REPORT INFORMATION
  Report Type: 
  Country: None (occurrence: None)
  Receive Date: 20100610
  Receipt Date: 20100217
  Transmission Date: 20101027
  Serious: No
  Sender: FDA-Public Use
  Company Number: 2010SP010731

PATIENT
  Age: 78 Year
  Sex: Male

DRUGS (4)
  1. SAPHRIS [Suspect]
     Indication: AFFECTIVE DISORDER
     Dosage: 5 MG; BID; SL
     Route: 060
     Dates: start: 20091101, end: 20100121
  2. SAPHRIS [Suspect]
     Indication: PARANOIA
     Dosage: 5 MG; BID; SL
     Route: 060
     Dates: start: 20091101, end: 20100121
  3. RITALIN [Concomitant]
  4. LITHIUM CARBONATE [Concomitant]

REACTIONS (2)
  - HOT FLUSH [None]
  - PYREXIA [None]
